FAERS Safety Report 19167645 (Version 2)
Quarter: 2021Q2

REPORT INFORMATION
  Report Type: Spontaneous
  Country: US (occurrence: US)
  Receive Date: 20210422
  Receipt Date: 20210426
  Transmission Date: 20210717
  Serious: Yes (Hospitalization, Other)
  Sender: FDA-Public Use
  Company Number: US-BIOVITRUM-2021US3789

PATIENT
  Age: 5 Month
  Sex: Male

DRUGS (2)
  1. SYNAGIS [Suspect]
     Active Substance: PALIVIZUMAB
     Indication: ANTIVIRAL PROPHYLAXIS
     Dosage: 100MG/ML
     Route: 030
     Dates: start: 202010, end: 202101
  2. SYNAGIS [Suspect]
     Active Substance: PALIVIZUMAB
     Indication: INFANTILE SPASMS
     Dosage: 50MG/0.5ML
     Route: 030
     Dates: start: 202101, end: 202102

REACTIONS (2)
  - Seizure [Unknown]
  - Off label use [Recovered/Resolved]

NARRATIVE: CASE EVENT DATE: 202010
